FAERS Safety Report 4644358-7 (Version None)
Quarter: 2005Q2

REPORT INFORMATION
  Report Type: 
  Country: None (occurrence: None)
  Receive Date: 20050331
  Receipt Date: 20050204
  Transmission Date: 20051028
  Serious: No
  Sender: FDA-Public Use
  Company Number: 04P-163-0284731-00

PATIENT
  Age: 54 Year
  Sex: Female
  Weight: 91.173 kg

DRUGS (19)
  1. HUMIRA [Suspect]
     Indication: RHEUMATOID ARTHRITIS
     Dosage: 40 MG, 1 IN 2 WK, SUBCUTANEOUS
     Route: 058
     Dates: start: 20041209, end: 20041221
  2. GLUCOSAMINE [Concomitant]
  3. PARACETAMOL [Concomitant]
  4. SOY ISOFLAVONES [Concomitant]
  5. CLOPIDOGREL BISULFATE [Concomitant]
  6. ASPIRIN [Concomitant]
  7. EFFEXOR XR [Concomitant]
  8. CLONAZEPAM [Concomitant]
  9. RANITIDINE HYDROCHLORIDE [Concomitant]
  10. POTASSIUM CHLORIDE [Concomitant]
  11. CLARINEX [Concomitant]
  12. PREDNISONE [Concomitant]
  13. METHOTREXATE [Concomitant]
  14. SULFASALAZINE [Concomitant]
  15. SULINDAC [Concomitant]
  16. DYAZIDE [Concomitant]
  17. FOLIC ACID [Concomitant]
  18. MULTI-VITAMINS [Concomitant]
  19. FLU SHOT [Concomitant]

REACTIONS (4)
  - COUGH [None]
  - DYSPNOEA [None]
  - LOCALISED INFECTION [None]
  - SENSATION OF FOREIGN BODY [None]
